FAERS Safety Report 23245358 (Version 1)
Quarter: 2023Q4

REPORT INFORMATION
  Report Type: Spontaneous
  Country: CN (occurrence: CN)
  Receive Date: 20231130
  Receipt Date: 20231130
  Transmission Date: 20240110
  Serious: Yes (Death, Life-Threatening)
  Sender: FDA-Public Use
  Company Number: CN-AMGEN-CHNSP2023195686

PATIENT
  Age: 42 Year
  Sex: Female

DRUGS (1)
  1. XGEVA [Suspect]
     Active Substance: DENOSUMAB
     Indication: Metastases to bone
     Dosage: 120 MILLIGRAM, Q4MO
     Route: 058
     Dates: start: 20230321, end: 2023

REACTIONS (2)
  - Hypocalcaemia [Not Recovered/Not Resolved]
  - Breast cancer metastatic [Fatal]

NARRATIVE: CASE EVENT DATE: 20231017
